FAERS Safety Report 19124873 (Version 3)
Quarter: 2021Q2

REPORT INFORMATION
  Report Type: Report from Study
  Country: JP (occurrence: JP)
  Receive Date: 20210413
  Receipt Date: 20210423
  Transmission Date: 20210717
  Serious: Yes (Other)
  Sender: FDA-Public Use
  Company Number: NVSJ2021JP004992

PATIENT
  Age: 25 Year
  Sex: Female
  Weight: 36.6 kg

DRUGS (4)
  1. ILARIS [Suspect]
     Active Substance: CANAKINUMAB
     Indication: HYPOPHYSITIS
     Dosage: 150 MG
     Route: 058
     Dates: start: 20200218, end: 20200218
  2. PREDONINE [Concomitant]
     Active Substance: PREDNISOLONE
     Indication: HYPOPHYSITIS
     Dosage: 18 MG
     Route: 048
     Dates: start: 1995
  3. NEORAL [Concomitant]
     Active Substance: CYCLOSPORINE
     Indication: HYPOPHYSITIS
     Dosage: 140 MG
     Route: 048
     Dates: start: 201908
  4. ILARIS [Suspect]
     Active Substance: CANAKINUMAB
     Dosage: 150 MG
     Route: 058
     Dates: start: 20200326, end: 20200326

REACTIONS (2)
  - Product use in unapproved indication [Unknown]
  - Interstitial lung disease [Unknown]
